FAERS Safety Report 5603140-4 (Version None)
Quarter: 2008Q1

REPORT INFORMATION
  Report Type: 
  Country: None (occurrence: None)
  Receive Date: 20080125
  Receipt Date: 20080115
  Transmission Date: 20080703
  Serious: Yes (Death, Hospitalization)
  Sender: FDA-Public Use
  Company Number: DE-PFIZER INC-2008005381

PATIENT
  Sex: Female

DRUGS (47)
  1. SORTIS [Suspect]
     Indication: HYPERCHOLESTEROLAEMIA
     Route: 048
     Dates: start: 20040729, end: 20041102
  2. HALOPERIDOL [Suspect]
     Route: 048
     Dates: start: 20041104, end: 20041105
  3. CLEXANE [Suspect]
     Indication: THROMBOSIS PROPHYLAXIS
     Dosage: TEXT:40MLG BID  TDD:80ML
     Route: 058
     Dates: start: 20041014, end: 20041028
  4. TAVOR [Suspect]
     Indication: SLEEP DISORDER
     Dosage: FREQ:DAILY
     Route: 048
     Dates: start: 20041014, end: 20041030
  5. RAMIPRIL [Suspect]
     Indication: HYPERTENSION
     Dosage: TEXT:0.5 OF 5MG DAILY TDD: 0.5 OF 5MG
     Route: 048
     Dates: start: 20041007, end: 20041031
  6. BELOC ZOK [Suspect]
     Indication: ACUTE MYOCARDIAL INFARCTION
     Route: 048
     Dates: start: 20041012, end: 20041031
  7. SODIUM CHLORIDE INJ [Concomitant]
     Route: 042
     Dates: start: 20041024, end: 20041027
  8. ALLOPURINOL [Concomitant]
     Indication: HYPERURICAEMIA
     Route: 048
     Dates: start: 20041024, end: 20041102
  9. GLUCOSE [Concomitant]
     Route: 042
  10. DISALUNIL [Concomitant]
     Indication: HYPERTENSION
     Route: 048
     Dates: start: 20041012, end: 20041031
  11. RED BLOOD CELLS [Concomitant]
     Route: 042
  12. PANTOZOL [Concomitant]
     Indication: PROPHYLAXIS
     Route: 048
     Dates: start: 20041007, end: 20041031
  13. TOREM [Concomitant]
     Indication: RENAL FAILURE
     Route: 048
  14. IRENAT [Concomitant]
     Indication: HYPERTHYROIDISM
     Route: 048
  15. ALL OTHER THERAPEUTIC PRODUCTS [Concomitant]
     Route: 048
  16. ASPIRIN [Concomitant]
     Route: 048
  17. ISCOVER [Concomitant]
     Route: 048
  18. LANTUS [Concomitant]
     Route: 058
  19. HUMALOG [Concomitant]
     Route: 058
  20. DIGITOXIN INJ [Concomitant]
     Indication: CARDIAC FAILURE
     Route: 048
  21. KALINOR [Concomitant]
     Route: 048
  22. LENDORMIN [Concomitant]
     Route: 048
  23. KLACID [Concomitant]
     Route: 048
     Dates: start: 20041018, end: 20041024
  24. METOCLOPRAMIDE [Concomitant]
     Indication: NAUSEA
     Route: 048
     Dates: start: 20041023, end: 20041028
  25. METOCLOPRAMIDE [Concomitant]
     Route: 042
     Dates: start: 20041024, end: 20041024
  26. KALINOR RETARD [Concomitant]
     Indication: HYPOKALAEMIA
     Route: 048
     Dates: start: 20041025, end: 20041101
  27. POTASSIUM CHLORIDE [Concomitant]
     Route: 042
     Dates: start: 20041027, end: 20041027
  28. EUNERPAN [Concomitant]
     Indication: SLEEP DISORDER
     Route: 048
  29. LOPERAMID [Concomitant]
     Indication: DIARRHOEA
     Route: 048
     Dates: start: 20041031, end: 20041031
  30. FUROSEMIDE [Concomitant]
     Route: 048
     Dates: start: 20041101, end: 20041101
  31. CARBAMAZEPINE [Concomitant]
     Indication: RESTLESSNESS
     Route: 048
     Dates: start: 20041101, end: 20041102
  32. SALUTEC [Concomitant]
     Route: 048
     Dates: start: 20041101, end: 20041102
  33. METOPROLOL TARTRATE [Concomitant]
  34. FURESIS [Concomitant]
     Route: 042
  35. JONOSTERIL [Concomitant]
  36. DIPIPERON [Concomitant]
     Route: 048
  37. FERROUS SULFATE TAB [Concomitant]
     Route: 048
  38. TAZOBACTAM [Concomitant]
     Route: 042
     Dates: start: 20041007, end: 20041015
  39. PARACETAMOL [Concomitant]
     Route: 042
     Dates: start: 20041014, end: 20041021
  40. NOVALGIN [Concomitant]
     Route: 048
     Dates: start: 20041017, end: 20041017
  41. ROHYPNOL [Concomitant]
     Route: 048
     Dates: start: 20041018, end: 20041018
  42. PROTHAZIN [Concomitant]
     Route: 042
     Dates: start: 20041105, end: 20041108
  43. UNACID [Concomitant]
     Route: 042
     Dates: start: 20041106, end: 20041106
  44. DIGITOXIN INJ [Concomitant]
     Route: 042
     Dates: start: 20041106, end: 20041108
  45. MORPHINE [Concomitant]
     Route: 042
     Dates: start: 20041106, end: 20041109
  46. TAVANIC [Concomitant]
     Route: 042
     Dates: start: 20041107, end: 20041110
  47. ALL OTHER THERAPEUTIC PRODUCTS [Concomitant]
     Route: 058

REACTIONS (4)
  - PAROTITIS [None]
  - PNEUMONIA [None]
  - STEVENS-JOHNSON SYNDROME [None]
  - UNEVALUABLE EVENT [None]
